FAERS Safety Report 7542479-2 (Version None)
Quarter: 2011Q2

REPORT INFORMATION
  Report Type: 
  Country: None (occurrence: None)
  Receive Date: 20110613
  Receipt Date: 20110608
  Transmission Date: 20111010
  Serious: Yes (Other)
  Sender: FDA-Public Use
  Company Number: US-PFIZER INC-2011107539

PATIENT
  Sex: Female
  Weight: 81.63 kg

DRUGS (9)
  1. AMITRIPTYLINE [Concomitant]
     Indication: ARTHRITIS
     Dosage: 100 MG, UNK
  2. LASIX [Concomitant]
     Dosage: UNK
  3. LYRICA [Suspect]
     Indication: MYALGIA
     Dosage: 300 MG, 2X/DAY
     Route: 048
     Dates: end: 20100101
  4. LYRICA [Suspect]
     Dosage: UNK
  5. LYRICA [Suspect]
     Dosage: 300 MG, 2X/DAY
     Dates: start: 20110401
  6. FUROSEMIDE [Concomitant]
     Indication: LIMB DISCOMFORT
     Dosage: UNK
  7. PRAVASTATIN [Concomitant]
     Indication: BLOOD CHOLESTEROL INCREASED
     Dosage: UNK
  8. FUROSEMIDE [Concomitant]
  9. XANAX [Concomitant]
     Dosage: UNK

REACTIONS (7)
  - ANXIETY [None]
  - PANIC ATTACK [None]
  - HEART RATE INCREASED [None]
  - HALLUCINATION [None]
  - WITHDRAWAL SYNDROME [None]
  - ARTHRITIS [None]
  - DYSPNOEA [None]
